FAERS Safety Report 20886706 (Version 1)
Quarter: 2022Q2

REPORT INFORMATION
  Report Type: Report from Study
  Country: US (occurrence: US)
  Receive Date: 20220528
  Receipt Date: 20220528
  Transmission Date: 20220720
  Serious: Yes (Other)
  Sender: FDA-Public Use
  Company Number: US-ABBVIE-22K-163-4413264-00

PATIENT
  Age: 37 Year
  Sex: Female

DRUGS (1)
  1. SKYRIZI [Suspect]
     Active Substance: RISANKIZUMAB-RZAA
     Indication: Psoriasis
     Dosage: WEEK 4 AND EVERY 12 WEEKS
     Route: 058
     Dates: start: 202106

REACTIONS (1)
  - Liposuction [Not Recovered/Not Resolved]

NARRATIVE: CASE EVENT DATE: 20220513
